FAERS Safety Report 21479834 (Version 3)
Quarter: 2022Q4

REPORT INFORMATION
  Report Type: Report from Study
  Country: US (occurrence: US)
  Receive Date: 20221019
  Receipt Date: 20221213
  Transmission Date: 20230113
  Serious: No
  Sender: FDA-Public Use
  Company Number: US-ABBVIE-4158047

PATIENT
  Sex: Female

DRUGS (2)
  1. SKYRIZI [Suspect]
     Active Substance: RISANKIZUMAB-RZAA
     Indication: Psoriatic arthropathy
     Route: 058
  2. METHOTREXATE [Suspect]
     Active Substance: METHOTREXATE
     Indication: Product used for unknown indication
     Route: 065

REACTIONS (10)
  - Arthralgia [Unknown]
  - Stress [Unknown]
  - Swelling [Unknown]
  - Fatigue [Unknown]
  - Memory impairment [Unknown]
  - Nausea [Unknown]
  - Peripheral swelling [Unknown]
  - Sciatica [Not Recovered/Not Resolved]
  - Pain in extremity [Unknown]
  - Feeling abnormal [Unknown]
